FAERS Safety Report 16051140 (Version 1)
Quarter: 2019Q1

REPORT INFORMATION
  Report Type: Spontaneous
  Country: CN (occurrence: CN)
  Receive Date: 20190308
  Receipt Date: 20190308
  Transmission Date: 20190418
  Serious: Yes (Other)
  Sender: FDA-Public Use
  Company Number: CN-ROCHE-2272590

PATIENT
  Age: 65 Year
  Sex: Male

DRUGS (4)
  1. XELODA [Suspect]
     Active Substance: CAPECITABINE
     Route: 065
  2. XELODA [Suspect]
     Active Substance: CAPECITABINE
     Indication: GASTRIC CANCER STAGE IV
     Route: 065
  3. OXALIPLATIN. [Concomitant]
     Active Substance: OXALIPLATIN
     Indication: GASTRIC CANCER
     Route: 065
  4. APATINIB [Suspect]
     Active Substance: APATINIB
     Indication: GASTRIC CANCER STAGE IV
     Route: 065

REACTIONS (16)
  - Gastric mucosal lesion [Unknown]
  - Haemorrhage [Unknown]
  - Hypertension [Recovering/Resolving]
  - Palmar-plantar erythrodysaesthesia syndrome [Recovering/Resolving]
  - Anaemia [Recovering/Resolving]
  - Pyrexia [Unknown]
  - Occult blood [Recovered/Resolved]
  - Weight decreased [Recovering/Resolving]
  - Bone marrow failure [Unknown]
  - Faeces discoloured [Unknown]
  - Malnutrition [Unknown]
  - Hepatic function abnormal [Recovering/Resolving]
  - White blood cell count increased [Recovered/Resolved]
  - Cholecystitis [Unknown]
  - Hiccups [Recovering/Resolving]
  - Platelet count decreased [Unknown]

NARRATIVE: CASE EVENT DATE: 201612
